FAERS Safety Report 6052373-4 (Version None)
Quarter: 2009Q1

REPORT INFORMATION
  Report Type: 
  Country: None (occurrence: None)
  Receive Date: 20090121
  Receipt Date: 20080403
  Transmission Date: 20090719
  Serious: Yes (Other)
  Sender: FDA-Public Use
  Company Number: HQWYE614101FEB06

PATIENT
  Age: 56 Year
  Sex: Female

DRUGS (10)
  1. PREMPRO [Suspect]
  2. CYCRIN [Suspect]
  3. ESTRACE [Suspect]
  4. ESTRADERM [Suspect]
  5. ESTRADIOL [Suspect]
  6. ESTRATAB [Suspect]
  7. ESTRATEST [Suspect]
  8. OGEN [Suspect]
  9. PREMARIN [Suspect]
  10. PROVERA [Suspect]

REACTIONS (1)
  - BREAST CANCER [None]
